FAERS Safety Report 7953985-0 (Version None)
Quarter: 2011Q4

REPORT INFORMATION
  Report Type: 
  Country: None (occurrence: None)
  Receive Date: 20111202
  Receipt Date: 20111202
  Transmission Date: 20120403
  Serious: No
  Sender: FDA-Public Use
  Company Number: None

PATIENT
  Age: 57 Year
  Sex: Male
  Weight: 99.79 kg

DRUGS (1)
  1. LEVAQUIN [Suspect]

REACTIONS (4)
  - DYSSTASIA [None]
  - IMPAIRED DRIVING ABILITY [None]
  - GAIT DISTURBANCE [None]
  - TENDON DISORDER [None]
